FAERS Safety Report 13051371 (Version 1)
Quarter: 2016Q4

REPORT INFORMATION
  Report Type: Spontaneous
  Country: US (occurrence: US)
  Receive Date: 20161221
  Receipt Date: 20161221
  Transmission Date: 20170207
  Serious: No
  Sender: FDA-Public Use
  Company Number: US-NOVOPROD-477908

PATIENT
  Age: 84 Year
  Sex: Male

DRUGS (1)
  1. LEVEMIR [Suspect]
     Active Substance: INSULIN DETEMIR
     Indication: TYPE 2 DIABETES MELLITUS
     Route: 058

REACTIONS (9)
  - Injection site bruising [Not Recovered/Not Resolved]
  - Injection site haemorrhage [Not Recovered/Not Resolved]
  - Hyperhidrosis [Unknown]
  - Injection site pain [Not Recovered/Not Resolved]
  - Night sweats [Unknown]
  - Somnolence [Unknown]
  - Drug ineffective [Unknown]
  - Blood glucose increased [Unknown]
  - Unevaluable event [Unknown]
